FAERS Safety Report 23593604 (Version 1)
Quarter: 2024Q1

REPORT INFORMATION
  Report Type: Spontaneous
  Country: US (occurrence: US)
  Receive Date: 20240304
  Receipt Date: 20240304
  Transmission Date: 20240410
  Serious: No
  Sender: FDA-Public Use
  Company Number: US-SANDOZ-SDZ2023US066817

PATIENT
  Sex: Male

DRUGS (2)
  1. ALBUTEROL SULFATE [Suspect]
     Active Substance: ALBUTEROL SULFATE
     Indication: Chronic obstructive pulmonary disease
     Dosage: DOSE=90MCG/DOS 200DO FREQ= ROUTE= EXPDT=20250228
     Route: 065
  2. ALBUTEROL SULFATE [Suspect]
     Active Substance: ALBUTEROL SULFATE
     Dosage: 90MCG/DOS
     Route: 065

REACTIONS (4)
  - Product dose omission issue [Unknown]
  - Product delivery mechanism issue [Unknown]
  - Device defective [Unknown]
  - Off label use [Unknown]
